FAERS Safety Report 7716802-X (Version None)
Quarter: 2011Q3

REPORT INFORMATION
  Report Type: 
  Country: None (occurrence: None)
  Receive Date: 20110829
  Receipt Date: 20110822
  Transmission Date: 20111222
  Serious: Yes (Life-Threatening)
  Sender: FDA-Public Use
  Company Number: FR-ABBOTT-08P-056-0449921-00

PATIENT
  Sex: Male
  Weight: 52 kg

DRUGS (5)
  1. FLUCONAZOLE [Concomitant]
     Indication: ORAL CANDIDIASIS
     Dosage: 100 MG DAILY
     Route: 048
     Dates: start: 20080221, end: 20080306
  2. RITONAVIR [Suspect]
     Indication: HIV INFECTION
     Dosage: 100 MG DAILY
     Route: 048
     Dates: start: 20080221, end: 20080311
  3. TENOFOVIR DISOPROXIL FUMARATE [Suspect]
     Indication: HIV INFECTION
     Dosage: 245 MG DAILY
     Route: 048
     Dates: start: 20080221, end: 20080311
  4. EMTRICITABINE [Concomitant]
     Indication: HIV INFECTION
     Dosage: 200 MG DAILY
     Dates: start: 20080221
  5. ATAZANAVIR [Suspect]
     Indication: HIV INFECTION
     Dosage: 300 MG DAILY
     Route: 048
     Dates: start: 20080221, end: 20080311

REACTIONS (5)
  - RENAL FAILURE [None]
  - RENAL TUBULAR DISORDER [None]
  - RENAL FAILURE ACUTE [None]
  - PROTEINURIA [None]
  - GLYCOSURIA [None]
